FAERS Safety Report 7108836-3 (Version None)
Quarter: 2011Q1

REPORT INFORMATION
  Report Type: 
  Country: None (occurrence: None)
  Receive Date: 20101112
  Receipt Date: 20101028
  Transmission Date: 20110831
  Serious: Yes (Death, Hospitalization)
  Sender: FDA-Public Use
  Company Number: 0211389

PATIENT
  Age: 71 Year
  Sex: Male

DRUGS (5)
  1. LANOXIN [Concomitant]
  2. LANSOPRAZOLE [Concomitant]
  3. HEPARIN SODIUM [Concomitant]
  4. TACHOSIL [Suspect]
     Indication: INCISIONAL DRAINAGE
     Dates: start: 20100217
  5. PRIMAXIN [Concomitant]

REACTIONS (5)
  - POST PROCEDURAL COMPLICATION [None]
  - RENAL FAILURE [None]
  - CARDIAC ARREST [None]
  - HAEMOTHORAX [None]
  - RESPIRATORY FAILURE [None]
